FAERS Safety Report 5632924-1 (Version None)
Quarter: 2008Q1

REPORT INFORMATION
  Report Type: 
  Country: None (occurrence: None)
  Receive Date: 20080221
  Receipt Date: 20080211
  Transmission Date: 20080703
  Serious: Yes (Other)
  Sender: FDA-Public Use
  Company Number: US-AMGEN-QUU259590

PATIENT
  Sex: Female

DRUGS (6)
  1. ENBREL [Suspect]
     Indication: RHEUMATOID ARTHRITIS
     Route: 058
     Dates: start: 19990107
  2. RELAFEN [Concomitant]
     Route: 065
     Dates: start: 19980714, end: 19990405
  3. BEXTRA [Concomitant]
     Route: 065
     Dates: start: 20041210, end: 20050408
  4. MOBIC [Concomitant]
     Route: 065
     Dates: start: 20050528
  5. CELEBREX [Concomitant]
     Route: 065
     Dates: start: 20010709, end: 20020301
  6. MINOCYCLINE HCL [Concomitant]
     Route: 065
     Dates: start: 20011216, end: 20021219

REACTIONS (5)
  - CERVIX CARCINOMA [None]
  - COAGULATION TIME SHORTENED [None]
  - PELVIC PAIN [None]
  - RENAL CYST [None]
  - VITAMIN B12 DEFICIENCY [None]
